FAERS Safety Report 7362464-3 (Version None)
Quarter: 2011Q1

REPORT INFORMATION
  Report Type: 
  Country: None (occurrence: None)
  Receive Date: 20110318
  Receipt Date: 20101125
  Transmission Date: 20110831
  Serious: Yes (Life-Threatening)
  Sender: FDA-Public Use
  Company Number: JP-ASTRAZENECA-2010SE51768

PATIENT
  Age: 63 Year
  Sex: Male

DRUGS (15)
  1. VERAPAMIL HCL [Concomitant]
     Route: 048
     Dates: start: 20100506
  2. FIRSTCIN [Suspect]
     Indication: INFECTION
     Route: 042
     Dates: start: 20100617, end: 20100621
  3. MEROPEN [Suspect]
     Indication: INFECTION
     Route: 042
     Dates: start: 20100515, end: 20100524
  4. FIRSTCIN [Suspect]
     Route: 042
     Dates: start: 20100623, end: 20100624
  5. WARFARIN SODIUM [Suspect]
     Indication: ATRIAL FIBRILLATION
     Route: 048
     Dates: start: 20080319, end: 20100624
  6. ALLELOCK [Concomitant]
     Route: 048
     Dates: start: 20100503
  7. MEROPEN [Suspect]
     Route: 042
     Dates: start: 20100617, end: 20100621
  8. VANCOMYCIN [Suspect]
     Dates: start: 20100624, end: 20100628
  9. LAC-B [Concomitant]
     Route: 048
     Dates: start: 20100510
  10. CEFMETAZOLE SODIUM [Concomitant]
     Dates: start: 20100506, end: 20100507
  11. DIGOXIN [Concomitant]
     Route: 048
  12. VANCOMYCIN [Suspect]
     Indication: INFECTION
     Dates: start: 20100611, end: 20100621
  13. WARFARIN SODIUM [Suspect]
     Route: 048
     Dates: start: 20100721
  14. OMEPRAL [Concomitant]
     Route: 048
  15. FERROUS CITRATE [Concomitant]
     Route: 048
     Dates: start: 20100416

REACTIONS (4)
  - COAGULATION TIME PROLONGED [None]
  - CONVULSION [None]
  - SUBDURAL HAEMATOMA [None]
  - FALL [None]
